FAERS Safety Report 12546845 (Version 2)
Quarter: 2018Q1

REPORT INFORMATION
  Report Type: Spontaneous
  Country: FR (occurrence: FR)
  Receive Date: 20160711
  Receipt Date: 20180301
  Transmission Date: 20180508
  Serious: Yes (Life-Threatening, Hospitalization, Other)
  Sender: FDA-Public Use
  Company Number: FR-ELI_LILLY_AND_COMPANY-FR201607001668

PATIENT
  Sex: Female
  Weight: 93 kg

DRUGS (12)
  1. ZOPICLONE [Suspect]
     Active Substance: ZOPICLONE
     Dosage: 210 MG, SINGLE
     Route: 048
     Dates: start: 20160511, end: 20160511
  2. LYSANXIA [Suspect]
     Active Substance: PRAZEPAM
     Indication: PRODUCT USED FOR UNKNOWN INDICATION
     Dosage: 10 MG, EACH MORNING
     Route: 065
  3. SEROPLEX [Suspect]
     Active Substance: ESCITALOPRAM OXALATE
     Indication: PRODUCT USED FOR UNKNOWN INDICATION
     Dosage: 10 MG, EACH EVENING
     Route: 065
  4. ZYPREXA [Suspect]
     Active Substance: OLANZAPINE
     Dosage: 1350 MG, SINGLE
     Route: 048
     Dates: start: 20160511, end: 20160511
  5. ABILIFY [Suspect]
     Active Substance: ARIPIPRAZOLE
     Dosage: 10 MG, UNKNOWN
     Route: 048
     Dates: start: 20160511, end: 20160511
  6. ZYPREXA [Suspect]
     Active Substance: OLANZAPINE
     Dosage: 20 MG, EACH EVENING
     Route: 065
  7. ZYPREXA [Suspect]
     Active Substance: OLANZAPINE
     Dosage: 1050 MG, SINGLE
     Route: 048
     Dates: start: 20160511, end: 20160511
  8. ZOPICLONE [Suspect]
     Active Substance: ZOPICLONE
     Indication: PRODUCT USED FOR UNKNOWN INDICATION
     Dosage: 7.5 MG, AT BEDTIME
     Route: 065
  9. LYSANXIA [Suspect]
     Active Substance: PRAZEPAM
     Dosage: 1440 MG, SINGLE
     Route: 048
     Dates: start: 20160511, end: 20160511
  10. SEROPLEX [Suspect]
     Active Substance: ESCITALOPRAM OXALATE
     Dosage: 140 MG, SINGLE
     Route: 048
     Dates: start: 20160511, end: 20160511
  11. ZYPREXA [Suspect]
     Active Substance: OLANZAPINE
     Indication: PRODUCT USED FOR UNKNOWN INDICATION
     Dosage: 10 MG, EACH MORNING
     Route: 065
  12. ABILIFY [Suspect]
     Active Substance: ARIPIPRAZOLE
     Indication: PRODUCT USED FOR UNKNOWN INDICATION
     Dosage: 0.5 DF, EACH MORNING
     Route: 048

REACTIONS (15)
  - Pneumonia aspiration [Unknown]
  - Prescribed overdose [Unknown]
  - Hypotonia [Recovered/Resolved]
  - Confusional state [Recovered/Resolved]
  - Agitation [Recovered/Resolved]
  - Miosis [Unknown]
  - Antipsychotic drug level above therapeutic [Unknown]
  - Benzodiazepine drug level [Unknown]
  - Intentional overdose [Unknown]
  - Body temperature decreased [Unknown]
  - Respiratory rate increased [Unknown]
  - Hypotension [Unknown]
  - Electrocardiogram QT prolonged [Unknown]
  - Coma [Recovered/Resolved]
  - Loss of consciousness [Unknown]
